FAERS Safety Report 20744096 (Version 1)
Quarter: 2022Q2

REPORT INFORMATION
  Report Type: Spontaneous
  Country: US (occurrence: None)
  Receive Date: 20220422
  Receipt Date: 20220422
  Transmission Date: 20220720
  Serious: Yes (Hospitalization)
  Sender: FDA-Public Use
  Company Number: None

PATIENT
  Sex: Female

DRUGS (2)
  1. UPTRAVI [Suspect]
     Active Substance: SELEXIPAG
  2. OPSUMIT [Concomitant]
     Active Substance: MACITENTAN
     Dosage: FREQUENCY : TWICE A DAY;?
     Route: 048
     Dates: start: 201804

REACTIONS (5)
  - Syncope [None]
  - Abdominal discomfort [None]
  - Diarrhoea [None]
  - Headache [None]
  - Therapy interrupted [None]
